FAERS Safety Report 15773386 (Version 1)
Quarter: 2018Q4

REPORT INFORMATION
  Report Type: Spontaneous
  Country: US (occurrence: US)
  Receive Date: 20181228
  Receipt Date: 20181228
  Transmission Date: 20190205
  Serious: No
  Sender: FDA-Public Use
  Company Number: US-NEUROCRINE BIOSCIENCES INC.-2018NBI03606

PATIENT
  Age: 64 Year
  Sex: Female

DRUGS (2)
  1. INGREZZA [Suspect]
     Active Substance: VALBENAZINE
     Indication: PRODUCT USED FOR UNKNOWN INDICATION
     Dates: start: 20170825
  2. LISINOPRIL. [Concomitant]
     Active Substance: LISINOPRIL
     Dates: start: 201809

REACTIONS (1)
  - Dyskinesia [Unknown]

NARRATIVE: CASE EVENT DATE: 2018
